FAERS Safety Report 9946974 (Version 1)
Quarter: 2014Q1

REPORT INFORMATION
  Report Type: Report from Study
  Country: US (occurrence: US)
  Receive Date: 20140303
  Receipt Date: 20140303
  Transmission Date: 20141002
  Serious: No
  Sender: FDA-Public Use
  Company Number: US-ABBVIE-13P-163-1063880-00

PATIENT
  Age: 36 Year
  Sex: Female

DRUGS (8)
  1. HUMIRA [Suspect]
     Indication: RHEUMATOID ARTHRITIS
     Dates: start: 201301
  2. METHOTREXATE [Concomitant]
     Indication: PRODUCT USED FOR UNKNOWN INDICATION
  3. METHOTREXATE [Concomitant]
  4. ARMOUR THYROID [Concomitant]
     Indication: HYPOTHYROIDISM
  5. WELLBUTRIN [Concomitant]
     Indication: DEPRESSION
  6. FOLIC ACID [Concomitant]
     Indication: PRODUCT USED FOR UNKNOWN INDICATION
     Dosage: 1 MG, 3 TABS DAILY
  7. VICODIN [Concomitant]
     Indication: PAIN
     Dosage: DID NOT NEED TO TAKE ANYMORE BECAUSE OF LESS PAIN
  8. PREDNISONE [Concomitant]
     Indication: PRODUCT USED FOR UNKNOWN INDICATION
     Dates: end: 201303

REACTIONS (5)
  - Oropharyngeal pain [Recovered/Resolved]
  - Insomnia [Recovering/Resolving]
  - Nasal oedema [Recovering/Resolving]
  - Aphonia [Recovering/Resolving]
  - Nasal congestion [Recovering/Resolving]
